FAERS Safety Report 4356165-3 (Version None)
Quarter: 2004Q2

REPORT INFORMATION
  Report Type: 
  Country: None (occurrence: None)
  Receive Date: 20040506
  Receipt Date: 20040422
  Transmission Date: 20050107
  Serious: Yes (Disabling)
  Sender: FDA-Public Use
  Company Number: IE-AMGEN-UK067156

PATIENT
  Age: 62 Year
  Sex: Female
  Weight: 71.6 kg

DRUGS (6)
  1. ARANESP [Suspect]
     Indication: RENAL FAILURE CHRONIC
     Dosage: 30 MCG, SC
     Route: 058
     Dates: start: 20030707
  2. VENOFER [Concomitant]
  3. MULTIVITAMIN [Concomitant]
  4. ATORVASTATIN CALCIUM [Concomitant]
  5. FOLIC ACID [Concomitant]
  6. SEVELAMER HCL [Concomitant]

REACTIONS (4)
  - ANAEMIA [None]
  - COOMBS TEST POSITIVE [None]
  - HAEMATURIA [None]
  - THERAPEUTIC RESPONSE DECREASED [None]
